FAERS Safety Report 25371447 (Version 2)
Quarter: 2025Q3

REPORT INFORMATION
  Report Type: Spontaneous
  Country: RS (occurrence: RS)
  Receive Date: 20250529
  Receipt Date: 20250715
  Transmission Date: 20251021
  Serious: Yes (Other)
  Sender: SUNOVION
  Company Number: RS-RICHTER-2025-GR-005951

PATIENT

DRUGS (2)
  1. ESTRADIOL\NORETHINDRONE ACETATE\RELUGOLIX [Suspect]
     Active Substance: ESTRADIOL\NORETHINDRONE ACETATE\RELUGOLIX
     Indication: Endometriosis
     Route: 065
     Dates: start: 20250108
  2. ESTRADIOL\NORETHINDRONE ACETATE\RELUGOLIX [Suspect]
     Active Substance: ESTRADIOL\NORETHINDRONE ACETATE\RELUGOLIX
     Indication: Leiomyoma

REACTIONS (7)
  - Syncope [Recovering/Resolving]
  - Heavy menstrual bleeding [Recovered/Resolved]
  - Oligomenorrhoea [Unknown]
  - Nausea [Unknown]
  - Dysmenorrhoea [Unknown]
  - Intermenstrual bleeding [Unknown]
  - Product dose omission issue [Unknown]

NARRATIVE: CASE EVENT DATE: 20250101
